FAERS Safety Report 8912802 (Version 2)
Quarter: 2012Q4

REPORT INFORMATION
  Report Type: 
  Country: US (occurrence: US)
  Receive Date: 20121115
  Receipt Date: 20121214
  Transmission Date: 20130627
  Serious: Yes (Other)
  Sender: FDA-Public Use
  Company Number: US-AMGEN-USASP2012072966

PATIENT
  Sex: Female

DRUGS (1)
  1. ENBREL [Suspect]
     Indication: RHEUMATOID ARTHRITIS
     Dosage: 50 mg, qwk
     Dates: start: 20070803

REACTIONS (8)
  - Basedow^s disease [Unknown]
  - Extraocular muscle disorder [Recovered/Resolved]
  - Nerve compression [Recovered/Resolved]
  - Diplopia [Unknown]
  - Cataract [Recovered/Resolved]
  - Vision blurred [Unknown]
  - Hypermetropia [Not Recovered/Not Resolved]
  - Reading disorder [Not Recovered/Not Resolved]
